FAERS Safety Report 10520679 (Version 4)
Quarter: 2015Q1

REPORT INFORMATION
  Report Type: Spontaneous
  Country: US (occurrence: US)
  Receive Date: 20141015
  Receipt Date: 20150327
  Transmission Date: 20150720
  Serious: Yes (Hospitalization, Other)
  Sender: FDA-Public Use
  Company Number: PHHY2014US093502

PATIENT
  Age: 26 Year
  Sex: Male
  Weight: 65.77 kg

DRUGS (22)
  1. LIORESAL [Suspect]
     Active Substance: BACLOFEN
     Dosage: 206.8 UG, QD (500 MCG/ML)
     Route: 037
  2. PENTASA [Suspect]
     Active Substance: MESALAMINE
     Indication: PRODUCT USED FOR UNKNOWN INDICATION
     Route: 065
  3. LIORESAL [Suspect]
     Active Substance: BACLOFEN
     Dosage: 174 UG, QD (2000 MCG/ML)
     Route: 037
  4. BOTOX [Suspect]
     Active Substance: ONABOTULINUMTOXINA
     Indication: PRODUCT USED FOR UNKNOWN INDICATION
     Route: 065
  5. LIORESAL [Suspect]
     Active Substance: BACLOFEN
     Dosage: 12 UG, QD (2000 MCG/ML)
     Route: 037
  6. BACLOFEN. [Suspect]
     Active Substance: BACLOFEN
     Dosage: 20 MG, EVERY 6 HOURS
     Route: 048
  7. CALCIUM CARBONATE. [Suspect]
     Active Substance: CALCIUM CARBONATE
     Indication: PRODUCT USED FOR UNKNOWN INDICATION
     Route: 065
  8. LAMOTRIGINE. [Suspect]
     Active Substance: LAMOTRIGINE
     Indication: PRODUCT USED FOR UNKNOWN INDICATION
     Route: 065
  9. BACLOFEN. [Suspect]
     Active Substance: BACLOFEN
     Indication: PRODUCT USED FOR UNKNOWN INDICATION
     Route: 048
  10. Q-PAP [Suspect]
     Active Substance: ACETAMINOPHEN
     Indication: PRODUCT USED FOR UNKNOWN INDICATION
     Route: 065
  11. LIORESAL [Suspect]
     Active Substance: BACLOFEN
     Dosage: 15.6 UG, QD (2000 MCG/ML)
     Route: 037
  12. LIORESAL [Suspect]
     Active Substance: BACLOFEN
     Dosage: 173.96 UG, QD (500 MCG/ML)
     Route: 037
     Dates: start: 20150126
  13. AZATHIOPRINE. [Suspect]
     Active Substance: AZATHIOPRINE
     Indication: PRODUCT USED FOR UNKNOWN INDICATION
     Route: 065
  14. FOLIC ACID. [Suspect]
     Active Substance: FOLIC ACID
     Indication: PRODUCT USED FOR UNKNOWN INDICATION
     Route: 065
  15. LIORESAL [Suspect]
     Active Substance: BACLOFEN
     Dosage: 10 UG/HR(500 MCG/ML)
     Route: 037
  16. LIORESAL [Suspect]
     Active Substance: BACLOFEN
     Dosage: 250.1 UG/15 MCG/HE (500 MCG/ML)
     Route: 037
     Dates: start: 20150312
  17. BACLOFEN. [Suspect]
     Active Substance: BACLOFEN
     Dosage: 30 MG, EVERY 6 HOURS
     Route: 048
  18. LIORESAL [Suspect]
     Active Substance: BACLOFEN
     Indication: MUSCLE SPASTICITY
     Dosage: 278.8 UG, QD (2000 MCG/ML)
     Route: 037
     Dates: start: 20140714
  19. BACLOFEN. [Suspect]
     Active Substance: BACLOFEN
     Dosage: 120 MG, QD (INCREASED)
     Route: 048
  20. RANITIDINE [Suspect]
     Active Substance: RANITIDINE\RANITIDINE HYDROCHLORIDE
     Indication: PRODUCT USED FOR UNKNOWN INDICATION
     Route: 065
  21. FLUTICASONE [Suspect]
     Active Substance: FLUTICASONE\FLUTICASONE PROPIONATE
     Indication: PRODUCT USED FOR UNKNOWN INDICATION
     Route: 048
  22. MULTI VITAMIN [Suspect]
     Active Substance: VITAMINS
     Indication: PRODUCT USED FOR UNKNOWN INDICATION
     Route: 065

REACTIONS (16)
  - Drug withdrawal syndrome [Recovered/Resolved]
  - Hypertonia [Recovered/Resolved]
  - Pneumonia [Recovered/Resolved]
  - Clonus [Recovered/Resolved]
  - Musculoskeletal stiffness [Recovered/Resolved]
  - Pyrexia [Recovered/Resolved]
  - Muscle spasms [Recovered/Resolved]
  - Unresponsive to stimuli [Recovered/Resolved]
  - Rhabdomyolysis [Recovered/Resolved]
  - Depressed level of consciousness [Recovered/Resolved]
  - Unevaluable event [Recovered/Resolved]
  - Muscle spasticity [Not Recovered/Not Resolved]
  - No therapeutic response [Recovered/Resolved]
  - Urinary tract infection [Recovered/Resolved]
  - Tremor [Recovered/Resolved]
  - Somnolence [Recovered/Resolved]

NARRATIVE: CASE EVENT DATE: 20140714
